FAERS Safety Report 5850935-8 (Version None)
Quarter: 2008Q3

REPORT INFORMATION
  Report Type: 
  Country: None (occurrence: None)
  Receive Date: 20080820
  Receipt Date: 20080812
  Transmission Date: 20090109
  Serious: Yes (Other)
  Sender: FDA-Public Use
  Company Number: PHEH2008US06907

PATIENT
  Age: 79 Year
  Sex: Female

DRUGS (15)
  1. RECLAST [Suspect]
     Indication: OSTEOPOROSIS
     Dosage: 5 MG
     Dates: start: 20080725
  2. AMBIEN [Concomitant]
  3. ASPIRIN [Concomitant]
  4. BENICAR [Concomitant]
  5. CITRUCEL [Concomitant]
  6. VITAMIN D [Concomitant]
  7. NEURONTIN [Concomitant]
  8. NORVASC [Concomitant]
  9. LOVAZA [Concomitant]
  10. MULTI-VITAMINS [Concomitant]
  11. PERCOCET [Concomitant]
  12. PRAVACHOL [Concomitant]
  13. PRAVASTATIN SODIUM [Concomitant]
  14. ASCORBIC ACID [Concomitant]
  15. XANAX [Concomitant]

REACTIONS (9)
  - BACK PAIN [None]
  - CHILLS [None]
  - DYSPEPSIA [None]
  - FATIGUE [None]
  - HEADACHE [None]
  - HYPOAESTHESIA [None]
  - INFLUENZA LIKE ILLNESS [None]
  - NECK PAIN [None]
  - NEUROPATHY PERIPHERAL [None]
